FAERS Safety Report 8481977-4 (Version None)
Quarter: 2012Q3

REPORT INFORMATION
  Report Type: 
  Country: None (occurrence: None)
  Receive Date: 20120702
  Receipt Date: 20120625
  Transmission Date: 20120928
  Serious: Yes (Other)
  Sender: FDA-Public Use
  Company Number: PHHY2012NZ054597

PATIENT
  Sex: Female

DRUGS (2)
  1. VALPROATE SODIUM [Concomitant]
  2. CLOZARIL [Suspect]
     Indication: SCHIZOPHRENIA
     Route: 048
     Dates: start: 20120216, end: 20120625

REACTIONS (4)
  - TOXICITY TO VARIOUS AGENTS [None]
  - WHITE BLOOD CELL COUNT DECREASED [None]
  - NEUTROPHIL COUNT DECREASED [None]
  - ANTIPSYCHOTIC DRUG LEVEL INCREASED [None]
